FAERS Safety Report 4431713-3 (Version None)
Quarter: 2004Q3

REPORT INFORMATION
  Report Type: 
  Country: None (occurrence: None)
  Receive Date: 20040825
  Receipt Date: 20040730
  Transmission Date: 20050211
  Serious: Yes (Other)
  Sender: FDA-Public Use
  Company Number: JP-BRISTOL-MYERS SQUIBB COMPANY-12657755

PATIENT
  Age: 32 Year
  Sex: Female

DRUGS (4)
  1. REYATAZ [Suspect]
     Dosage: ONCE DAILY
     Route: 048
     Dates: start: 20040717
  2. VIREAD [Suspect]
     Route: 048
     Dates: start: 20040717
  3. EPIVIR [Suspect]
     Route: 048
     Dates: start: 20040717
  4. NORVIR [Suspect]
     Route: 048
     Dates: start: 20040717

REACTIONS (3)
  - HYPERBILIRUBINAEMIA [None]
  - NAIL DISORDER [None]
  - PARONYCHIA [None]
